FAERS Safety Report 5032774-3 (Version None)
Quarter: 2006Q2

REPORT INFORMATION
  Report Type: 
  Country: None (occurrence: None)
  Receive Date: 20060620
  Receipt Date: 20060620
  Transmission Date: 20061013
  Serious: Yes (Hospitalization)
  Sender: FDA-Public Use
  Company Number: None

PATIENT
  Sex: Male
  Weight: 89.3586 kg

DRUGS (9)
  1. REVLIMID [Suspect]
     Indication: PROSTATE CANCER
     Dosage: 10 MGS QD PO
     Route: 048
     Dates: start: 20060411, end: 20060618
  2. TAXOTERE [Suspect]
     Indication: PROSTATE CANCER
     Dosage: 75 MG/M2 Q THREE WEEKS IV DRIP
     Route: 041
     Dates: start: 20060411, end: 20060618
  3. LISINOPRIL [Concomitant]
  4. ATENOLOL [Concomitant]
  5. SELENIUM/GREEN TEA EXTRACT [Concomitant]
  6. NEXIUM [Concomitant]
  7. LASIX [Concomitant]
  8. LUPRON [Concomitant]
  9. PERCOCET [Concomitant]

REACTIONS (2)
  - NEUTROPENIA [None]
  - SEPSIS [None]
